FAERS Safety Report 24462829 (Version 1)
Quarter: 2024Q4

REPORT INFORMATION
  Report Type: Spontaneous
  Country: JO (occurrence: JO)
  Receive Date: 20241018
  Receipt Date: 20241018
  Transmission Date: 20250115
  Serious: Yes (Hospitalization)
  Sender: Vantive US Healthcare
  Company Number: JO-VANTIVE-2024VAN020257

PATIENT
  Age: 65 Year
  Sex: Male

DRUGS (2)
  1. EXTRANEAL [Suspect]
     Active Substance: CALCIUM CHLORIDE\ICODEXTRIN\MAGNESIUM CHLORIDE\SODIUM CHLORIDE\SODIUM LACTATE
     Dosage: UNK
     Route: 033
     Dates: start: 20240927
  2. CYCLOSPORINE [Concomitant]
     Active Substance: CYCLOSPORINE
     Indication: Psoriasis
     Route: 065

REACTIONS (2)
  - Skin exfoliation [Recovering/Resolving]
  - Skin discharge [Recovering/Resolving]
